FAERS Safety Report 10910547 (Version 2)
Quarter: 2016Q1

REPORT INFORMATION
  Report Type: Spontaneous
  Country: US (occurrence: US)
  Receive Date: 20150312
  Receipt Date: 20160322
  Transmission Date: 20160525
  Serious: No
  Sender: FDA-Public Use
  Company Number: US-SA-2014SA172260

PATIENT
  Age: 74 Year
  Sex: Female

DRUGS (1)
  1. NASACORT ALLERGY 24HR [Suspect]
     Active Substance: TRIAMCINOLONE ACETONIDE
     Indication: RHINORRHOEA
     Dosage: 2 SPRAYS/NARE
     Route: 065

REACTIONS (3)
  - Visual impairment [Unknown]
  - Sinus disorder [Unknown]
  - Facial paralysis [Unknown]

NARRATIVE: CASE EVENT DATE: 20141209
